FAERS Safety Report 20693370 (Version 1)
Quarter: 2022Q2

REPORT INFORMATION
  Report Type: Report from Study
  Country: ES (occurrence: ES)
  Receive Date: 20220410
  Receipt Date: 20220410
  Transmission Date: 20220721
  Serious: Yes (Hospitalization, Other)
  Sender: FDA-Public Use
  Company Number: ES-SA-SAC20220321001453

PATIENT
  Age: 73 Year
  Sex: Male
  Weight: 79 kg

DRUGS (3)
  1. ELIQUIS [Suspect]
     Active Substance: APIXABAN
     Indication: Product used for unknown indication
     Route: 048
  2. INSULIN GLARGINE [Suspect]
     Active Substance: INSULIN GLARGINE
     Indication: Type 2 diabetes mellitus
     Dosage: 28 U, QD
     Route: 058
     Dates: start: 2017
  3. APIDRA [Concomitant]
     Active Substance: INSULIN GLULISINE
     Indication: Type 2 diabetes mellitus
     Dosage: DOSE: ACCORDING TO BLOOD GLUCOSE VALUES
     Route: 058

REACTIONS (13)
  - Burning sensation [Unknown]
  - Memory impairment [Unknown]
  - Blood glucose decreased [Unknown]
  - Multiple use of single-use product [Unknown]
  - Anaemia [Unknown]
  - Contusion [Unknown]
  - Loss of personal independence in daily activities [Unknown]
  - Blood potassium increased [Recovering/Resolving]
  - Product dose omission issue [Unknown]
  - Anorectal disorder [Unknown]
  - Cardiac disorder [Recovering/Resolving]
  - Product storage error [Unknown]
  - Renal impairment [Recovering/Resolving]
